FAERS Safety Report 9005552 (Version 1)
Quarter: 2013Q1

REPORT INFORMATION
  Report Type: Spontaneous
  Country: US (occurrence: US)
  Receive Date: 20130109
  Receipt Date: 20130109
  Transmission Date: 20140127
  Serious: Yes (Death)
  Sender: FDA-Public Use
  Company Number: US-PFIZER INC-2013005785

PATIENT
  Age: 48 Year
  Sex: Female

DRUGS (5)
  1. VERAPAMIL HCL [Suspect]
  2. OXYCODONE HYDROCHLORIDE [Suspect]
  3. GABAPENTIN [Suspect]
  4. METHADONE [Suspect]
     Dosage: UNK
  5. DIPHENHYDRAMINE [Suspect]

REACTIONS (3)
  - Accidental exposure to product [Fatal]
  - Cardiac arrest [Fatal]
  - Respiratory arrest [Fatal]
